FAERS Safety Report 7730153-9 (Version None)
Quarter: 2011Q3

REPORT INFORMATION
  Report Type: 
  Country: None (occurrence: None)
  Receive Date: 20110817
  Receipt Date: 20100828
  Transmission Date: 20111222
  Serious: Yes (Other)
  Sender: FDA-Public Use
  Company Number: 20109192

PATIENT
  Sex: Female

DRUGS (3)
  1. BUPIVACAINE HCL [Concomitant]
  2. FENTANYL-100 [Concomitant]
  3. LIORESAL [Suspect]
     Indication: MUSCLE SPASTICITY
     Dosage: SEE B5 MCG, DAILY, INTRATHECAL
     Route: 037

REACTIONS (3)
  - WOUND DRAINAGE [None]
  - OPEN WOUND [None]
  - WOUND DEHISCENCE [None]
